FAERS Safety Report 15110752 (Version 1)
Quarter: 2018Q3

REPORT INFORMATION
  Report Type: Other
  Country: IT (occurrence: IT)
  Receive Date: 20180705
  Receipt Date: 20180705
  Transmission Date: 20181010
  Serious: Yes (Other)
  Sender: FDA-Public Use
  Company Number: IT-APOPHARMA USA, INC.-2018AP016147

PATIENT
  Age: 32 Year
  Sex: Female

DRUGS (3)
  1. ACIDO FOLICO DOC GENERICI 5 MG COMPRESSE [Concomitant]
     Indication: PRODUCT USED FOR UNKNOWN INDICATION
     Dosage: 10 MG, UNKNOWN
     Route: 048
  2. FERRIPROX [Suspect]
     Active Substance: DEFERIPRONE
     Indication: HAEMOCHROMATOSIS
     Dosage: 5500 MG, Q.O.D.
     Route: 048
     Dates: start: 20180110, end: 20180523
  3. DEFEROXAMINA NORIDEM 500 MG POLVERE PER SOLUZIONE INIETTABILE O INFUSI [Concomitant]
     Indication: PRODUCT USED FOR UNKNOWN INDICATION
     Dosage: 2500 MG, UNKNOWN
     Route: 042

REACTIONS (1)
  - Agranulocytosis [Recovering/Resolving]

NARRATIVE: CASE EVENT DATE: 20180523
